FAERS Safety Report 7834312-6 (Version None)
Quarter: 2011Q4

REPORT INFORMATION
  Report Type: 
  Country: None (occurrence: None)
  Receive Date: 20111024
  Receipt Date: 20111013
  Transmission Date: 20120403
  Serious: Yes (Hospitalization)
  Sender: FDA-Public Use
  Company Number: PHHY2011CA91193

PATIENT
  Sex: Female

DRUGS (1)
  1. SANDOSTATIN LAR [Suspect]
     Indication: GASTROENTERITIS RADIATION
     Dosage: 20 MG, QMO
     Route: 030
     Dates: start: 20110705

REACTIONS (3)
  - PULMONARY EMBOLISM [None]
  - GASTROENTERITIS RADIATION [None]
  - DISEASE PROGRESSION [None]
